FAERS Safety Report 8832836 (Version 1)
Quarter: 2012Q4

REPORT INFORMATION
  Report Type: Spontaneous
  Country: US (occurrence: None)
  Receive Date: 20121009
  Receipt Date: 20121009
  Transmission Date: 20130627
  Serious: Yes (Hospitalization)
  Sender: FDA-Public Use
  Company Number: None

PATIENT
  Age: 61 Year
  Sex: Male
  Weight: 49.1 kg

DRUGS (1)
  1. TRAMADOL [Suspect]
     Indication: PAIN
     Route: 048
     Dates: start: 20080807, end: 20121003

REACTIONS (5)
  - Tremor [None]
  - Hypertonia [None]
  - Partial seizures [None]
  - Convulsion [None]
  - Blood potassium decreased [None]
